FAERS Safety Report 13367672 (Version 1)
Quarter: 2017Q1

REPORT INFORMATION
  Report Type: Spontaneous
  Country: US (occurrence: US)
  Receive Date: 20170323
  Receipt Date: 20170323
  Transmission Date: 20170429
  Serious: Yes (Disabling)
  Sender: FDA-Public Use
  Company Number: None

PATIENT
  Age: 53 Year
  Sex: Female
  Weight: 72 kg

DRUGS (5)
  1. FISH OIL [Concomitant]
     Active Substance: FISH OIL
  2. MAGNESIUM [Concomitant]
     Active Substance: MAGNESIUM
  3. CIPROFLOAXIN 500MG [Suspect]
     Active Substance: CIPROFLOXACIN
     Indication: INFECTION
     Dosage: ?          QUANTITY:10 TABLET(S);?
     Route: 048
     Dates: start: 20140108, end: 20140113
  4. ORGANIC MULTI VITAMIN [Concomitant]
  5. PRO-BIOTICS [Concomitant]

REACTIONS (4)
  - Fibromyalgia [None]
  - Arthritis [None]
  - Activities of daily living impaired [None]
  - Tendonitis [None]

NARRATIVE: CASE EVENT DATE: 20140108
